FAERS Safety Report 25175231 (Version 3)
Quarter: 2025Q4

REPORT INFORMATION
  Report Type: Report from Study
  Country: US (occurrence: US)
  Receive Date: 20250408
  Receipt Date: 20251013
  Transmission Date: 20260117
  Serious: No
  Sender: TG THERAPEUTICS
  Company Number: US-TG THERAPEUTICS INC.-TGT004417

PATIENT

DRUGS (6)
  1. UBLITUXIMAB [Suspect]
     Active Substance: UBLITUXIMAB
     Indication: Multiple sclerosis
     Dosage: UNK
     Route: 042
     Dates: start: 20231017, end: 20231017
  2. UBLITUXIMAB [Suspect]
     Active Substance: UBLITUXIMAB
     Dosage: UNK
     Dates: start: 20231102, end: 20231102
  3. UBLITUXIMAB [Suspect]
     Active Substance: UBLITUXIMAB
     Dosage: 450 MILLIGRAM
     Route: 042
     Dates: start: 20240604, end: 20240604
  4. UBLITUXIMAB [Suspect]
     Active Substance: UBLITUXIMAB
     Dosage: UNK
     Route: 042
     Dates: start: 20241218, end: 20241218
  5. UBLITUXIMAB [Suspect]
     Active Substance: UBLITUXIMAB
     Dosage: 450 MILLIGRAM
     Route: 042
     Dates: start: 20250609, end: 20250609
  6. UNSPECIFIED INGREDIENT [Concomitant]
     Active Substance: UNSPECIFIED INGREDIENT
     Indication: Premedication
     Dosage: UNK
     Dates: start: 202310

REACTIONS (7)
  - Gait disturbance [Unknown]
  - Muscular weakness [Unknown]
  - Bladder dysfunction [Unknown]
  - Oropharyngeal discomfort [Unknown]
  - Dizziness [Unknown]
  - Grip strength decreased [Unknown]
  - Drug hypersensitivity [Unknown]

NARRATIVE: CASE EVENT DATE: 20231001
